FAERS Safety Report 20187527 (Version 1)
Quarter: 2021Q4

REPORT INFORMATION
  Report Type: Spontaneous
  Country: US (occurrence: None)
  Receive Date: 20211214
  Receipt Date: 20211214
  Transmission Date: 20220303
  Serious: No
  Sender: FDA-Public Use
  Company Number: None

PATIENT
  Age: 74 Year
  Sex: Female

DRUGS (1)
  1. THALOMID [Suspect]
     Active Substance: THALIDOMIDE
     Indication: Arteriovenous malformation
     Dosage: FREQUENCY : TWICE A DAY;?
     Route: 048
     Dates: start: 20211117, end: 20211213

REACTIONS (8)
  - Anaemia [None]
  - Melaena [None]
  - Palpitations [None]
  - Nausea [None]
  - Dizziness [None]
  - Chest pain [None]
  - Heart rate increased [None]
  - Drug intolerance [None]

NARRATIVE: CASE EVENT DATE: 20211213
